FAERS Safety Report 25046875 (Version 1)
Quarter: 2025Q1

REPORT INFORMATION
  Report Type: Spontaneous
  Country: US (occurrence: US)
  Receive Date: 20250306
  Receipt Date: 20250306
  Transmission Date: 20250409
  Serious: Yes (Hospitalization)
  Sender: LEO PHARM
  Company Number: US-LEO Pharma-378055

PATIENT
  Age: 20 Year
  Sex: Female
  Weight: 70 kg

DRUGS (2)
  1. ADBRY [Suspect]
     Active Substance: TRALOKINUMAB-LDRM
     Indication: Dermatitis atopic
     Dosage: TREATMENT REPORTED AS ONGOING
     Route: 058
  2. ADBRY [Suspect]
     Active Substance: TRALOKINUMAB-LDRM
     Indication: Dermatitis atopic
     Route: 058
     Dates: start: 202501

REACTIONS (3)
  - Injection site reaction [Unknown]
  - Syncope [Unknown]
  - Urticaria [Unknown]

NARRATIVE: CASE EVENT DATE: 20250226
